FAERS Safety Report 10914954 (Version 2)
Quarter: 2015Q2

REPORT INFORMATION
  Report Type: Report from Study
  Country: US (occurrence: US)
  Receive Date: 20150314
  Receipt Date: 20150424
  Transmission Date: 20150821
  Serious: Yes (Other)
  Sender: FDA-Public Use
  Company Number: US-BIOGENIDEC-2015BI032545

PATIENT
  Age: 58 Year
  Sex: Male

DRUGS (9)
  1. KREALKLINE [Concomitant]
  2. NUTRO SUPPORT [Concomitant]
  3. FISH OIL [Concomitant]
     Active Substance: FISH OIL
  4. EVENING PRIMROSE [Concomitant]
  5. AVONEX [Suspect]
     Active Substance: INTERFERON BETA-1A
     Indication: MULTIPLE SCLEROSIS
     Route: 030
     Dates: start: 20120407
  6. CALCIUM CITRATE [Concomitant]
     Active Substance: CALCIUM CITRATE
  7. VITAMIN C [Concomitant]
     Active Substance: ASCORBIC ACID
  8. FLOMAX [Concomitant]
     Active Substance: TAMSULOSIN HYDROCHLORIDE
  9. LUNESTA [Concomitant]
     Active Substance: ESZOPICLONE

REACTIONS (2)
  - Intentional product misuse [Recovered/Resolved]
  - Vascular occlusion [Recovered/Resolved]

NARRATIVE: CASE EVENT DATE: 20150304
